FAERS Safety Report 10375046 (Version 3)
Quarter: 2014Q3

REPORT INFORMATION
  Report Type: Spontaneous
  Country: JP (occurrence: JP)
  Receive Date: 20140811
  Receipt Date: 20140919
  Transmission Date: 20150326
  Serious: No
  Sender: FDA-Public Use
  Company Number: JP-B.I. PHARMACEUTICALS,INC./RIDGEFIELD-2014-BI-36796NB

PATIENT
  Age: 65 Year
  Sex: Male

DRUGS (5)
  1. TOFOGLIFLOZIN [Suspect]
     Active Substance: TOFOGLIFLOZIN
     Indication: DIABETES MELLITUS
     Dosage: 20 MG
     Route: 048
     Dates: start: 20140626
  2. GLIMEPIRIDE. [Concomitant]
     Active Substance: GLIMEPIRIDE
     Indication: DIABETES MELLITUS
     Dosage: 1.5 MG
     Route: 048
  3. CO-DIO [Concomitant]
     Indication: HYPERTENSION
     Route: 048
  4. ALLOPURINOL. [Concomitant]
     Active Substance: ALLOPURINOL
     Indication: HYPERURICAEMIA
     Dosage: 300 MG
     Route: 048
  5. TRAZENTA [Suspect]
     Active Substance: LINAGLIPTIN
     Indication: DIABETES MELLITUS
     Dosage: 5 MG
     Route: 048
     Dates: start: 20140529, end: 20140605

REACTIONS (1)
  - Drug eruption [Not Recovered/Not Resolved]

NARRATIVE: CASE EVENT DATE: 20140604
